FAERS Safety Report 9768339 (Version 1)
Quarter: 2013Q4

REPORT INFORMATION
  Report Type: Spontaneous
  Country: US (occurrence: US)
  Receive Date: 20131217
  Receipt Date: 20131217
  Transmission Date: 20140711
  Serious: Yes (Life-Threatening, Hospitalization, Other)
  Sender: FDA-Public Use
  Company Number: CHPA2013US018474

PATIENT
  Age: 66 Year
  Sex: Female

DRUGS (1)
  1. PRIVATE LABEL STRENGTH UNKNOWN [Suspect]
     Indication: SMOKING CESSATION THERAPY
     Dosage: UNK
     Route: 062

REACTIONS (8)
  - Cardiac arrest [Recovered/Resolved]
  - Cerebrovascular accident [Recovered/Resolved]
  - Renal failure [Recovered/Resolved]
  - Convulsion [Recovered/Resolved]
  - Abdominal strangulated hernia [Recovered/Resolved]
  - Osteoporosis [Unknown]
  - Mental disorder [Recovered/Resolved]
  - Malaise [Recovered/Resolved]
